FAERS Safety Report 8366286-6 (Version None)
Quarter: 2012Q2

REPORT INFORMATION
  Report Type: 
  Country: None (occurrence: None)
  Receive Date: 20120517
  Receipt Date: 20120514
  Transmission Date: 20120825
  Serious: Yes (Life-Threatening, Hospitalization)
  Sender: FDA-Public Use
  Company Number: PHEH2012US010143

PATIENT
  Sex: Male

DRUGS (1)
  1. COMTAN [Suspect]

REACTIONS (2)
  - APPARENT DEATH [None]
  - INTESTINAL OBSTRUCTION [None]
